FAERS Safety Report 5109889-4 (Version None)
Quarter: 2006Q3

REPORT INFORMATION
  Report Type: 
  Country: None (occurrence: None)
  Receive Date: 20060919
  Receipt Date: 20060919
  Transmission Date: 20061208
  Serious: Yes (Other)
  Sender: FDA-Public Use
  Company Number: None

PATIENT
  Age: 69 Year
  Sex: Female
  Weight: 51.7101 kg

DRUGS (7)
  1. CETUXIMAB [Suspect]
     Indication: NEOPLASM MALIGNANT
     Dates: start: 20060601
  2. ATARAX [Concomitant]
  3. LANOXIN [Concomitant]
  4. DILANTIN [Concomitant]
  5. LOTENSIN [Concomitant]
  6. HYDRODIURIL [Concomitant]
  7. COUMADIN [Concomitant]

REACTIONS (2)
  - ADVERSE DRUG REACTION [None]
  - DERMATITIS ACNEIFORM [None]
